FAERS Safety Report 7816859 (Version 12)
Quarter: 2013Q3

REPORT INFORMATION
  Report Type: Report from Study
  Country: US (occurrence: US)
  Receive Date: 20110217
  Receipt Date: 20130808
  Transmission Date: 20140515
  Serious: Yes (Hospitalization, Other)
  Sender: FDA-Public Use
  Company Number: PHHO2011US02979

PATIENT
  Age: 80 Year
  Sex: Female

DRUGS (15)
  1. TASIGNA [Suspect]
     Indication: CHRONIC MYELOID LEUKAEMIA
     Dosage: 300 MG, BID
     Route: 048
     Dates: start: 20080604, end: 20081213
  2. TASIGNA [Suspect]
     Dosage: NO TREATMENT
     Route: 048
     Dates: start: 20081214, end: 20081231
  3. TASIGNA [Suspect]
     Dosage: 300 MG, BID
     Route: 048
     Dates: start: 20090101, end: 20110207
  4. TASIGNA [Suspect]
     Dosage: 300 MG, BID
     Route: 048
     Dates: end: 20120205
  5. TASIGNA [Suspect]
     Dosage: 300 MG, BID
     Route: 048
     Dates: start: 20120208, end: 20120915
  6. TASIGNA [Suspect]
     Dosage: 300 MG, BID
     Route: 048
     Dates: start: 20120916, end: 20130114
  7. COZAAR [Concomitant]
     Indication: HYPERTENSION
     Dosage: 25 MG, QD
     Route: 048
  8. COZAAR [Concomitant]
     Dosage: 75 MG, QD
     Route: 048
  9. NORVASC [Concomitant]
     Indication: HYPERTENSION
     Dosage: 5 MG, QD
     Route: 048
     Dates: start: 20081121
  10. HYDROCHLOROTHIAZIDE [Concomitant]
     Indication: HYPERTENSION
     Dosage: 25 MG, QD
     Route: 048
     Dates: start: 20110125
  11. ANTIHYPERTENSIVE DRUGS [Concomitant]
  12. PLAVIX [Concomitant]
     Indication: PROPHYLAXIS
     Dosage: 75 MG, QD
     Route: 048
     Dates: start: 20111002
  13. METOPROLOL SUCCINATE [Concomitant]
     Indication: MYOCARDIAL INFARCTION
     Dosage: 25 MG, QD
     Route: 048
     Dates: start: 20111202
  14. SIMVASTATIN [Concomitant]
     Indication: HYPERLIPIDAEMIA
     Dosage: 40 MG, QD
     Route: 048
     Dates: start: 20110319, end: 20120205
  15. ECOTRIN [Concomitant]
     Indication: PROPHYLAXIS
     Dosage: 325 MG, QD
     Route: 048
     Dates: start: 20110311

REACTIONS (13)
  - Angina pectoris [Recovered/Resolved]
  - Myocardial infarction [Recovered/Resolved]
  - Chest discomfort [Recovered/Resolved]
  - Back pain [Recovered/Resolved]
  - Troponin I increased [Recovered/Resolved]
  - Coronary artery disease [Recovered/Resolved]
  - QRS axis abnormal [Recovered/Resolved]
  - Left ventricular hypertrophy [Recovered/Resolved]
  - Electrocardiogram repolarisation abnormality [Recovered/Resolved]
  - Hypertension [Recovered/Resolved]
  - Obesity [Recovered/Resolved]
  - Dyslipidaemia [Recovered/Resolved]
  - Concomitant disease progression [Recovered/Resolved]
